FAERS Safety Report 11180515 (Version 4)
Quarter: 2015Q3

REPORT INFORMATION
  Report Type: Spontaneous
  Country: US (occurrence: US)
  Receive Date: 20150611
  Receipt Date: 20150917
  Transmission Date: 20151125
  Serious: Yes (Hospitalization)
  Sender: FDA-Public Use
  Company Number: US-PFIZER INC-2015190779

PATIENT
  Age: 79 Year
  Sex: Female
  Weight: 51.25 kg

DRUGS (6)
  1. TRAMADOL. [Concomitant]
     Active Substance: TRAMADOL
     Dosage: UNK
     Dates: end: 20150615
  2. TYLENOL [Concomitant]
     Active Substance: ACETAMINOPHEN
     Dosage: UNK
  3. SUTENT [Suspect]
     Active Substance: SUNITINIB MALATE
     Indication: RENAL CANCER
     Dosage: 50 MG, ONCE A DAY (28 DAYS ON/14 DAYS OFF)
     Dates: start: 201505
  4. SYNTHROID [Concomitant]
     Active Substance: LEVOTHYROXINE SODIUM
     Dosage: UNK
  5. SUTENT [Suspect]
     Active Substance: SUNITINIB MALATE
     Dosage: 50 MG, CYCLIC (28 DAYS ON/14 DAYS OFF)
     Dates: start: 20150408, end: 20150703
  6. OXYCODONE [Concomitant]
     Active Substance: OXYCODONE
     Dosage: UNK

REACTIONS (20)
  - Epistaxis [Recovered/Resolved]
  - Device failure [Unknown]
  - Dry skin [Unknown]
  - Bone pain [Recovered/Resolved]
  - Nausea [Unknown]
  - Constipation [Unknown]
  - Ageusia [Unknown]
  - Platelet count decreased [Unknown]
  - Haematochezia [Unknown]
  - Vomiting [Recovered/Resolved]
  - Yellow skin [Unknown]
  - Decreased appetite [Recovered/Resolved]
  - Fatigue [Unknown]
  - Disease progression [Unknown]
  - Renal cancer [Unknown]
  - Hallucination [Recovered/Resolved]
  - Pain [Recovered/Resolved]
  - Gingival pain [Unknown]
  - Thyroid disorder [Unknown]
  - Hypertension [Unknown]

NARRATIVE: CASE EVENT DATE: 2015
